FAERS Safety Report 14870574 (Version 2)
Quarter: 2018Q2

REPORT INFORMATION
  Report Type: Spontaneous
  Country: US (occurrence: US)
  Receive Date: 20180509
  Receipt Date: 20180621
  Transmission Date: 20180711
  Serious: No
  Sender: FDA-Public Use
  Company Number: US-PFIZER INC-2018188285

PATIENT
  Age: 6 Year
  Sex: Female
  Weight: 24.49 kg

DRUGS (1)
  1. QUILLIVANT XR [Suspect]
     Active Substance: METHYLPHENIDATE HYDROCHLORIDE
     Indication: ATTENTION DEFICIT/HYPERACTIVITY DISORDER
     Dosage: 8 ML, DAILY, (6 ML IN MORNING AND 2 ML IN AFTERNOON)
     Dates: start: 2017

REACTIONS (3)
  - Weight decreased [Not Recovered/Not Resolved]
  - Drug ineffective [Unknown]
  - Decreased appetite [Unknown]
